FAERS Safety Report 12433078 (Version 1)
Quarter: 2016Q2

REPORT INFORMATION
  Report Type: Spontaneous
  Country: US (occurrence: None)
  Receive Date: 20160602
  Receipt Date: 20160602
  Transmission Date: 20160815
  Serious: No
  Sender: FDA-Public Use
  Company Number: None

PATIENT
  Age: 78 Year
  Sex: Male

DRUGS (12)
  1. ERIVEDGE [Suspect]
     Active Substance: VISMODEGIB
     Indication: SKIN CANCER
     Route: 048
     Dates: start: 201602, end: 20160522
  2. ATOVASTATIN [Concomitant]
     Active Substance: ATORVASTATIN
  3. BYSTOLIC [Concomitant]
     Active Substance: NEBIVOLOL HYDROCHLORIDE
  4. AMLODIPINE [Concomitant]
     Active Substance: AMLODIPINE BESYLATE
  5. ASPIRIN. [Concomitant]
     Active Substance: ASPIRIN
  6. MOTRIN [Concomitant]
     Active Substance: IBUPROFEN
  7. FOLIC ACID. [Concomitant]
     Active Substance: FOLIC ACID
  8. SYNDRROID [Concomitant]
  9. PROSCAR [Concomitant]
     Active Substance: FINASTERIDE
  10. CILOSTAZOL. [Concomitant]
     Active Substance: CILOSTAZOL
  11. ZOTIN [Concomitant]
  12. COZAAR [Concomitant]
     Active Substance: LOSARTAN POTASSIUM

REACTIONS (1)
  - Drug ineffective [None]

NARRATIVE: CASE EVENT DATE: 20160522
